FAERS Safety Report 6046002-3 (Version None)
Quarter: 2009Q1

REPORT INFORMATION
  Report Type: 
  Country: None (occurrence: None)
  Receive Date: 20090116
  Receipt Date: 20090109
  Transmission Date: 20090719
  Serious: Yes (Other)
  Sender: FDA-Public Use
  Company Number: POMP-1000406

PATIENT
  Age: 3 Year
  Sex: Female

DRUGS (1)
  1. MYOZYME [Suspect]
     Indication: GLYCOGEN STORAGE DISEASE TYPE II
     Dosage: 300 MG, Q2W, INTRAVENOUS
     Route: 042
     Dates: start: 20050902

REACTIONS (11)
  - ALOPECIA [None]
  - CARDIOMYOPATHY [None]
  - DEHYDRATION [None]
  - DISEASE PROGRESSION [None]
  - FOREIGN BODY TRAUMA [None]
  - INFECTION [None]
  - PNEUMONIA [None]
  - RESPIRATORY DISTRESS [None]
  - RESPIRATORY FAILURE [None]
  - STREPTOCOCCAL BACTERAEMIA [None]
  - TRACHEAL DISORDER [None]
